FAERS Safety Report 13555083 (Version 3)
Quarter: 2017Q3

REPORT INFORMATION
  Report Type: Spontaneous
  Country: US (occurrence: US)
  Receive Date: 20170517
  Receipt Date: 20170920
  Transmission Date: 20171127
  Serious: Yes (Other)
  Sender: FDA-Public Use
  Company Number: US-BAYER-2017-093601

PATIENT
  Age: 39 Year
  Sex: Female
  Weight: 61.22 kg

DRUGS (1)
  1. MIRENA [Suspect]
     Active Substance: LEVONORGESTREL
     Indication: CONTRACEPTION
     Dosage: 20 MCG/24HR, CONT
     Route: 015
     Dates: start: 20150315, end: 20170524

REACTIONS (5)
  - Constipation [None]
  - Loss of personal independence in daily activities [None]
  - Abdominal pain lower [None]
  - Uterine perforation [Recovered/Resolved]
  - Fatigue [None]

NARRATIVE: CASE EVENT DATE: 20170227
